FAERS Safety Report 8982624 (Version 3)
Quarter: 2013Q3

REPORT INFORMATION
  Report Type: Spontaneous
  Country: AU (occurrence: AU)
  Receive Date: 20121221
  Receipt Date: 20130917
  Transmission Date: 20140515
  Serious: Yes (Death, Hospitalization)
  Sender: FDA-Public Use
  Company Number: AU-B.I. PHARMACEUTICALS,INC./RIDGEFIELD-2012-AU-02011AU

PATIENT
  Age: 88 Year
  Sex: Female

DRUGS (9)
  1. PRADAXA [Suspect]
     Indication: CEREBROVASCULAR ACCIDENT PROPHYLAXIS
     Dosage: 220 MG
     Dates: start: 20110726
  2. PRADAXA [Suspect]
     Indication: ATRIAL FIBRILLATION
  3. PRADAXA [Suspect]
     Indication: AORTIC VALVE REPLACEMENT
  4. ALPHAPRESS [Concomitant]
     Indication: CARDIAC DISORDER
  5. AVAPRO [Concomitant]
     Indication: CARDIAC DISORDER
  6. LASIX [Concomitant]
     Indication: CARDIAC DISORDER
  7. METOPROLOL [Concomitant]
     Indication: CARDIAC DISORDER
  8. LIPITOR [Concomitant]
     Indication: CARDIAC DISORDER
  9. RAMIPRIL [Concomitant]
     Indication: CARDIAC DISORDER

REACTIONS (5)
  - Cerebrovascular accident [Fatal]
  - Depressed level of consciousness [Unknown]
  - Renal impairment [Unknown]
  - Adverse drug reaction [Recovered/Resolved]
  - Off label use [Unknown]
